FAERS Safety Report 7683798-9 (Version None)
Quarter: 2011Q3

REPORT INFORMATION
  Report Type: 
  Country: None (occurrence: None)
  Receive Date: 20110815
  Receipt Date: 20110810
  Transmission Date: 20111222
  Serious: Yes (Hospitalization)
  Sender: FDA-Public Use
  Company Number: CA-US-EMD SERONO, INC.-220001N05CAN

PATIENT
  Sex: Male
  Weight: 64 kg

DRUGS (6)
  1. SAIZEN [Suspect]
     Route: 058
     Dates: start: 20040422, end: 20041101
  2. L-TYROXINE [Concomitant]
     Indication: HYPOTHYROIDISM
     Route: 048
     Dates: start: 20021031
  3. SAIZEN [Suspect]
     Route: 058
     Dates: start: 20050421, end: 20050421
  4. SAIZEN [Suspect]
     Indication: GROWTH HORMONE DEFICIENCY
     Route: 058
     Dates: start: 20040212, end: 20040422
  5. HYDROCORTISONE [Concomitant]
     Indication: BLOOD CORTICOTROPHIN DECREASED
     Route: 048
     Dates: start: 20020601
  6. DESMOPRESSIN [Concomitant]
     Indication: DIABETES INSIPIDUS
     Dates: start: 20020601

REACTIONS (1)
  - BRAIN NEOPLASM [None]
